FAERS Safety Report 23933419 (Version 1)
Quarter: 2024Q2

REPORT INFORMATION
  Report Type: Spontaneous
  Country: US (occurrence: US)
  Receive Date: 20240603
  Receipt Date: 20240603
  Transmission Date: 20240716
  Serious: No
  Sender: FDA-Public Use
  Company Number: US-TARO PHARMACEUTICALS USA INC.-2023TAR00489

PATIENT

DRUGS (1)
  1. CLOTRIMAZOLE [Suspect]
     Active Substance: CLOTRIMAZOLE
     Indication: Fungal infection
     Dosage: UNK, TWICE, APPLICATOR FULL
     Route: 067
     Dates: start: 20230424

REACTIONS (3)
  - Accidental exposure to product [Unknown]
  - Nausea [Unknown]
  - Illness [Unknown]

NARRATIVE: CASE EVENT DATE: 20230426
